FAERS Safety Report 7532864-7 (Version None)
Quarter: 2011Q2

REPORT INFORMATION
  Report Type: 
  Country: None (occurrence: None)
  Receive Date: 20110608
  Receipt Date: 20110603
  Transmission Date: 20111010
  Serious: Yes (Other)
  Sender: FDA-Public Use
  Company Number: JP-PFIZER INC-2011121071

PATIENT
  Age: 86 Year
  Sex: Female

DRUGS (1)
  1. ZOSYN [Suspect]
     Dosage: 13.5 G, UNK
     Route: 041
     Dates: start: 20110421, end: 20110425

REACTIONS (1)
  - HYPOKALAEMIA [None]
